FAERS Safety Report 18926956 (Version 1)
Quarter: 2021Q1

REPORT INFORMATION
  Report Type: Spontaneous
  Country: US (occurrence: US)
  Receive Date: 20210222
  Receipt Date: 20210222
  Transmission Date: 20210420
  Serious: Yes (Other)
  Sender: FDA-Public Use
  Company Number: None

PATIENT
  Age: 66 Year
  Sex: Female
  Weight: 114.75 kg

DRUGS (6)
  1. VITAMIN C [Concomitant]
     Active Substance: ASCORBIC ACID
  2. RUSK DEMI PERMANENT [COSMETICS] [Suspect]
     Active Substance: COSMETICS
     Indication: HAIR DYE USER
     Dates: start: 20210216, end: 20210216
  3. CLOBETASOL PROPIONATE OINTMENT USP, 0.05% [Suspect]
     Active Substance: CLOBETASOL PROPIONATE
  4. COPAXONE [Concomitant]
     Active Substance: GLATIRAMER ACETATE
  5. VIT D [Concomitant]
     Active Substance: VITAMIN D NOS
  6. CENTRUM SILVER FOR WOMEN [Concomitant]
     Active Substance: MINERALS\VITAMINS

REACTIONS (3)
  - Eye swelling [None]
  - Paraesthesia [None]
  - Dermatitis contact [None]

NARRATIVE: CASE EVENT DATE: 20210216
